FAERS Safety Report 7292260-7 (Version None)
Quarter: 2010Q4

REPORT INFORMATION
  Report Type: 
  Country: None (occurrence: None)
  Receive Date: 20101223
  Receipt Date: 20091216
  Transmission Date: 20110411
  Serious: Yes (Other)
  Sender: FDA-Public Use
  Company Number: FEI2009-2428

PATIENT
  Age: 32 Year
  Sex: Female
  Weight: 64.8644 kg

DRUGS (1)
  1. PARAGARD T 380A [Suspect]
     Indication: CONTRACEPTION
     Dosage: I.U.
     Dates: start: 20071016, end: 20091124

REACTIONS (3)
  - ECTOPIC PREGNANCY [None]
  - NAUSEA [None]
  - VAGINAL HAEMORRHAGE [None]
